FAERS Safety Report 6546677-6 (Version None)
Quarter: 2010Q1

REPORT INFORMATION
  Report Type: 
  Country: None (occurrence: None)
  Receive Date: 20100122
  Receipt Date: 20100112
  Transmission Date: 20100710
  Serious: Yes (Other)
  Sender: FDA-Public Use
  Company Number: BR-PFIZER INC-2010004173

PATIENT
  Age: 77 Year
  Sex: Female
  Weight: 39.002 kg

DRUGS (3)
  1. LYRICA [Suspect]
     Indication: FIBROMYALGIA
     Dosage: 75 MG, UNK
     Route: 048
     Dates: start: 20100101
  2. OMEPRAZOL [Concomitant]
     Indication: GASTRITIS
     Dosage: UNK
  3. LEXOTAN [Concomitant]
     Dosage: UNK

REACTIONS (2)
  - HEPATIC NEOPLASM [None]
  - MALAISE [None]
